FAERS Safety Report 13052306 (Version 1)
Quarter: 2016Q4

REPORT INFORMATION
  Report Type: Report from Study
  Country: DE (occurrence: DE)
  Receive Date: 20161221
  Receipt Date: 20161221
  Transmission Date: 20170207
  Serious: Yes (Other)
  Sender: FDA-Public Use
  Company Number: DE-INGENUS PHARMACEUTICALS NJ, LLC-ING201612-000168

PATIENT
  Age: 21 Year
  Sex: Female

DRUGS (3)
  1. CARISOPRODOL AND ASPIRIN [Suspect]
     Active Substance: ASPIRIN\CARISOPRODOL
  2. IBUPROFEN. [Suspect]
     Active Substance: IBUPROFEN
  3. METAMIZOL [Suspect]
     Active Substance: METAMIZOLE SODIUM

REACTIONS (2)
  - Angioedema [Unknown]
  - Urticaria [Unknown]
